FAERS Safety Report 5840182-8 (Version None)
Quarter: 2008Q3

REPORT INFORMATION
  Report Type: 
  Country: None (occurrence: None)
  Receive Date: 20080811
  Receipt Date: 20080805
  Transmission Date: 20090109
  Serious: Yes (Life-Threatening)
  Sender: FDA-Public Use
  Company Number: JP-EISAI MEDICAL RESEARCH-E2090-00516-SPO-JP

PATIENT
  Age: 30 Year
  Sex: Male

DRUGS (1)
  1. EXCEGRAN [Suspect]
     Indication: CONVULSION
     Route: 048
     Dates: start: 20080504, end: 20080614

REACTIONS (4)
  - MUCOSAL EROSION [None]
  - MUCOSAL HAEMORRHAGE [None]
  - SKIN EROSION [None]
  - SKIN HAEMORRHAGE [None]
